FAERS Safety Report 8190879-2 (Version None)
Quarter: 2012Q1

REPORT INFORMATION
  Report Type: 
  Country: None (occurrence: None)
  Receive Date: 20120307
  Receipt Date: 20120302
  Transmission Date: 20120608
  Serious: Yes (Other)
  Sender: FDA-Public Use
  Company Number: US-BAYER-2012-021308

PATIENT
  Sex: Female

DRUGS (2)
  1. DROSPIRENONE AND ETHINYL ESTRADIOL [Suspect]
     Dosage: UNK
     Dates: start: 20080701, end: 20100401
  2. YASMIN [Suspect]
     Dosage: UNK
     Dates: start: 20040901, end: 20100401

REACTIONS (5)
  - CEREBROVASCULAR ACCIDENT [None]
  - GENERAL PHYSICAL HEALTH DETERIORATION [None]
  - ANXIETY [None]
  - EMOTIONAL DISORDER [None]
  - PAIN [None]
